FAERS Safety Report 22976835 (Version 2)
Quarter: 2023Q4

REPORT INFORMATION
  Report Type: Spontaneous
  Country: US (occurrence: US)
  Receive Date: 20230925
  Receipt Date: 20231108
  Transmission Date: 20240110
  Serious: Yes (Other)
  Sender: FDA-Public Use
  Company Number: US-KOREA IPSEN Pharma-2023-22316

PATIENT
  Age: 58 Year
  Sex: Male

DRUGS (2)
  1. SOMATULINE DEPOT [Suspect]
     Active Substance: LANREOTIDE ACETATE
     Indication: Acromegaly
     Dosage: OTHER WEEK
     Route: 058
  2. CABERGOLINE [Concomitant]
     Active Substance: CABERGOLINE

REACTIONS (5)
  - Lumbar vertebral fracture [Unknown]
  - Dehydration [Unknown]
  - Constipation [Unknown]
  - Diarrhoea [Unknown]
  - Off label use [Unknown]

NARRATIVE: CASE EVENT DATE: 20230913
